FAERS Safety Report 4681049-0 (Version None)
Quarter: 2005Q2

REPORT INFORMATION
  Report Type: 
  Country: None (occurrence: None)
  Receive Date: 20050601
  Receipt Date: 20050525
  Transmission Date: 20051028
  Serious: Yes (Other)
  Sender: FDA-Public Use
  Company Number: 2005079674

PATIENT
  Sex: Male

DRUGS (2)
  1. LIPITOR [Suspect]
     Indication: ILL-DEFINED DISORDER
     Dosage: UNKNOWN
     Route: 065
     Dates: start: 19980101
  2. VIOXX [Suspect]
     Indication: OSTEOARTHRITIS
     Dosage: UNKNOWN
     Route: 065
     Dates: start: 19990101

REACTIONS (1)
  - MYOCARDIAL INFARCTION [None]
